FAERS Safety Report 17097397 (Version 1)
Quarter: 2019Q4

REPORT INFORMATION
  Report Type: Spontaneous
  Country: US (occurrence: US)
  Receive Date: 20191105
  Receipt Date: 20191105
  Transmission Date: 20200122
  Serious: No
  Sender: FDA-Public Use
  Company Number: None

PATIENT
  Sex: Female

DRUGS (1)
  1. ENBREL [Suspect]
     Active Substance: ETANERCEPT
     Indication: DRUG THERAPY
     Route: 058
     Dates: start: 20190910

REACTIONS (5)
  - Eye pruritus [None]
  - Feeding disorder [None]
  - Dry mouth [None]
  - Dry eye [None]
  - Alopecia [None]
